FAERS Safety Report 18397570 (Version 1)
Quarter: 2020Q4

REPORT INFORMATION
  Report Type: Spontaneous
  Country: US (occurrence: US)
  Receive Date: 20201018
  Receipt Date: 20201018
  Transmission Date: 20210114
  Serious: Yes (Other)
  Sender: FDA-Public Use
  Company Number: None

PATIENT
  Age: 61 Year
  Sex: Female
  Weight: 90.45 kg

DRUGS (8)
  1. DAILY VITAMINS WITH IRON [Concomitant]
  2. D 3 [Concomitant]
  3. DEXTROAMPHET SACCHARAT, AMPHET ASPARTATE, DEXTROAMPHET SULFATE AND AMPHET SULFAT [Suspect]
     Active Substance: AMPHETAMINE ASPARTATE\AMPHETAMINE SULFATE\DEXTROAMPHETAMINE SACCHARATE\DEXTROAMPHETAMINE SULFATE
     Indication: ATTENTION DEFICIT HYPERACTIVITY DISORDER
     Dosage: ?          QUANTITY:60 CAPSULE(S);?
     Route: 048
     Dates: start: 20200301, end: 20200919
  4. AMLODIPINE BESYLATE. [Concomitant]
     Active Substance: AMLODIPINE BESYLATE
  5. VITAMIN B12 [Concomitant]
     Active Substance: CYANOCOBALAMIN
  6. VALISONE CREAM [Concomitant]
  7. OMEPRAZOLE. [Concomitant]
     Active Substance: OMEPRAZOLE
  8. DEXTROAMPHET SACCHARAT, AMPHET ASPARTATE, DEXTROAMPHET SULFATE AND AMPHET SULFAT [Suspect]
     Active Substance: AMPHETAMINE ASPARTATE\AMPHETAMINE SULFATE\DEXTROAMPHETAMINE SACCHARATE\DEXTROAMPHETAMINE SULFATE
     Indication: ANAEMIA
     Dosage: ?          QUANTITY:60 CAPSULE(S);?
     Route: 048
     Dates: start: 20200301, end: 20200919

REACTIONS (14)
  - Reaction to excipient [None]
  - Symptom recurrence [None]
  - Arrhythmia [None]
  - Pruritus [None]
  - Nausea [None]
  - Adverse drug reaction [None]
  - Therapeutic response decreased [None]
  - Product quality issue [None]
  - Manufacturing materials issue [None]
  - Drug ineffective [None]
  - Product quality control issue [None]
  - Product substitution issue [None]
  - Gastrooesophageal reflux disease [None]
  - Aphthous ulcer [None]

NARRATIVE: CASE EVENT DATE: 20200301
